FAERS Safety Report 7819069-7 (Version None)
Quarter: 2011Q4

REPORT INFORMATION
  Report Type: 
  Country: None (occurrence: None)
  Receive Date: 20111018
  Receipt Date: 20111010
  Transmission Date: 20120403
  Serious: Yes (Other)
  Sender: FDA-Public Use
  Company Number: US-ASTELLAS-2011US006638

PATIENT

DRUGS (2)
  1. PROTOPIC [Suspect]
     Dosage: UNK
     Route: 061
     Dates: start: 20050101, end: 20060101
  2. PROTOPIC [Suspect]
     Indication: SKIN DISORDER
     Dosage: UNK
     Route: 061
     Dates: start: 20040101, end: 20041201

REACTIONS (1)
  - BREAST CANCER [None]
